FAERS Safety Report 4506384-8 (Version None)
Quarter: 2004Q4

REPORT INFORMATION
  Report Type: 
  Country: None (occurrence: None)
  Receive Date: 20041025
  Receipt Date: 20030908
  Transmission Date: 20050328
  Serious: Yes (Hospitalization)
  Sender: FDA-Public Use
  Company Number: US-JNJFOC-20030901919

PATIENT
  Age: 59 Year
  Sex: Male
  Weight: 90.7194 kg

DRUGS (8)
  1. REMICADE [Suspect]
     Indication: CROHN'S DISEASE
     Dosage: , 1 IN 1 DAY, INTRAVENOUS
     Route: 042
     Dates: start: 20030129
  2. REMICADE [Suspect]
     Indication: CROHN'S DISEASE
     Dosage: , 1 IN 1 DAY, INTRAVENOUS
     Route: 042
     Dates: start: 20030213
  3. REMICADE [Suspect]
     Indication: CROHN'S DISEASE
     Dosage: , 1 IN 1 DAY, INTRAVENOUS
     Route: 042
     Dates: start: 20030716
  4. SYNTHROID [Concomitant]
  5. IMMODIUM (LOPERAMIDE HYDROCHLORIDE) [Concomitant]
  6. PREDNISONE [Concomitant]
  7. PREVACID [Concomitant]
  8. B 12 (CYANOCOBALAMIN) [Concomitant]

REACTIONS (2)
  - SEPTIC SHOCK [None]
  - STAPHYLOCOCCAL SEPSIS [None]
